FAERS Safety Report 23015537 (Version 6)
Quarter: 2023Q4

REPORT INFORMATION
  Report Type: Spontaneous
  Country: US (occurrence: US)
  Receive Date: 20231002
  Receipt Date: 20231228
  Transmission Date: 20240110
  Serious: No
  Sender: FDA-Public Use
  Company Number: US-PFIZER INC-202300296275

PATIENT
  Age: 13 Year
  Sex: Male
  Weight: 45.36 kg

DRUGS (2)
  1. GENOTROPIN [Suspect]
     Active Substance: SOMATROPIN
     Indication: Growth hormone deficiency
     Dosage: 2.8 UNK, ALTERNATE DAY (2.6, 2.8 EVERY OTHER)
  2. GENOTROPIN [Suspect]
     Active Substance: SOMATROPIN
     Dosage: 2.6 UNK, ALTERNATE DAY (2.6, 2.8 EVERY OTHER)

REACTIONS (5)
  - Device use issue [Unknown]
  - Drug dose omission by device [Unknown]
  - Off label use [Unknown]
  - Product administered at inappropriate site [Unknown]
  - Lack of administration site rotation [Unknown]
